FAERS Safety Report 18174161 (Version 1)
Quarter: 2020Q3

REPORT INFORMATION
  Report Type: Spontaneous
  Country: US (occurrence: US)
  Receive Date: 20200819
  Receipt Date: 20200819
  Transmission Date: 20201103
  Serious: No
  Sender: FDA-Public Use
  Company Number: None

PATIENT
  Age: 39 Year
  Sex: Female
  Weight: 148.05 kg

DRUGS (18)
  1. JANUVIA [Suspect]
     Active Substance: SITAGLIPTIN PHOSPHATE
     Indication: TYPE 2 DIABETES MELLITUS
     Dosage: ?          QUANTITY:1 TABLET(S);?
     Route: 048
     Dates: start: 20200623, end: 20200818
  2. PEPCID [Concomitant]
     Active Substance: FAMOTIDINE
  3. SERTRALINE [Concomitant]
     Active Substance: SERTRALINE HYDROCHLORIDE
  4. TOPIRAMATE. [Concomitant]
     Active Substance: TOPIRAMATE
  5. TRULICITY [Concomitant]
     Active Substance: DULAGLUTIDE
  6. EXCEDRIN MIGRAINE EXTRA STRENGTH [Concomitant]
  7. LACTULOSE. [Concomitant]
     Active Substance: LACTULOSE
  8. ACETAMINOPHEN. [Concomitant]
     Active Substance: ACETAMINOPHEN
  9. CLARITIN [Concomitant]
     Active Substance: LORATADINE
  10. PROZASIN [Concomitant]
  11. TESTING STRIPS [Concomitant]
  12. ACCUCHECK GLUCOMETER [Concomitant]
  13. ASPIRIN. [Concomitant]
     Active Substance: ASPIRIN
  14. OMEPRAZOLE. [Concomitant]
     Active Substance: OMEPRAZOLE
  15. ZOFRAN [Concomitant]
     Active Substance: ONDANSETRON HYDROCHLORIDE
  16. CAFFEINE. [Concomitant]
     Active Substance: CAFFEINE
  17. ATORVASTATIN [Concomitant]
     Active Substance: ATORVASTATIN
  18. LANCETS [Concomitant]
     Active Substance: DEVICE

REACTIONS (9)
  - Headache [None]
  - Peripheral swelling [None]
  - Depression [None]
  - Irritability [None]
  - Crying [None]
  - Anger [None]
  - Chromaturia [None]
  - Abdominal pain upper [None]
  - Joint swelling [None]

NARRATIVE: CASE EVENT DATE: 20200713
